FAERS Safety Report 16369640 (Version 1)
Quarter: 2019Q2

REPORT INFORMATION
  Report Type: Spontaneous
  Country: FR (occurrence: FR)
  Receive Date: 20190530
  Receipt Date: 20190530
  Transmission Date: 20190711
  Serious: Yes (Other)
  Sender: FDA-Public Use
  Company Number: PHHY2019FR120327

PATIENT
  Age: 58 Year
  Sex: Male

DRUGS (2)
  1. SUCCINYLCHOLINE CHLORIDE. [Suspect]
     Active Substance: SUCCINYLCHOLINE CHLORIDE
     Indication: GENERAL ANAESTHESIA
     Dosage: 1 MG/KG, UNK
     Route: 042
  2. ETOMIDATE. [Concomitant]
     Active Substance: ETOMIDATE
     Indication: GENERAL ANAESTHESIA
     Dosage: 0.3 MG/KG, UNK
     Route: 042

REACTIONS (3)
  - Ventricular fibrillation [Unknown]
  - Hyperkalaemia [Unknown]
  - Ventricular tachycardia [Unknown]
